FAERS Safety Report 17787393 (Version 3)
Quarter: 2020Q3

REPORT INFORMATION
  Report Type: Spontaneous
  Country: SI (occurrence: SI)
  Receive Date: 20200514
  Receipt Date: 20200903
  Transmission Date: 20201102
  Serious: Yes (Death, Other)
  Sender: FDA-Public Use
  Company Number: SI-BAYER-2020-081544

PATIENT
  Age: 48 Year
  Sex: Male

DRUGS (3)
  1. STIVARGA [Suspect]
     Active Substance: REGORAFENIB
     Indication: COLORECTAL CANCER
     Dosage: 120 MG DAILY
  2. STIVARGA [Suspect]
     Active Substance: REGORAFENIB
     Indication: COLORECTAL CANCER
     Dosage: 160 MG DAILY
     Dates: end: 20190623
  3. STIVARGA [Suspect]
     Active Substance: REGORAFENIB
     Indication: COLORECTAL CANCER
     Dosage: 80 MG DAILY
     Dates: start: 20190509

REACTIONS (3)
  - Colorectal cancer [Fatal]
  - Palmar-plantar erythrodysaesthesia syndrome [None]
  - Blood phosphorus decreased [None]

NARRATIVE: CASE EVENT DATE: 201905
